FAERS Safety Report 16071390 (Version 2)
Quarter: 2019Q2

REPORT INFORMATION
  Report Type: Spontaneous
  Country: US (occurrence: US)
  Receive Date: 20190314
  Receipt Date: 20190607
  Transmission Date: 20190711
  Serious: No
  Sender: FDA-Public Use
  Company Number: US-PFIZER INC-2019101472

PATIENT
  Age: 72 Year
  Sex: Male
  Weight: 88 kg

DRUGS (1)
  1. MORPHINE SULFATE. [Suspect]
     Active Substance: MORPHINE SULFATE
     Dosage: UNK
     Dates: start: 2018

REACTIONS (1)
  - Feeling abnormal [Unknown]
